FAERS Safety Report 5851754-9 (Version None)
Quarter: 2008Q3

REPORT INFORMATION
  Report Type: 
  Country: None (occurrence: None)
  Receive Date: 20080808
  Receipt Date: 20071205
  Transmission Date: 20090109
  Serious: Yes (Other)
  Sender: FDA-Public Use
  Company Number: US-JNJFOC-20071202311

PATIENT
  Age: 14 Month
  Sex: Male

DRUGS (1)
  1. CHILDREN'S MOTRIN [Suspect]
     Indication: LIMB INJURY
     Dosage: 25 MG, 2 IN 1 TOTAL, ORAL
     Route: 048
     Dates: start: 20071204, end: 20071204

REACTIONS (6)
  - CHEILITIS [None]
  - COUGH [None]
  - FLUSHING [None]
  - POOR QUALITY SLEEP [None]
  - VOMITING [None]
  - WHEEZING [None]
